FAERS Safety Report 16842819 (Version 2)
Quarter: 2020Q3

REPORT INFORMATION
  Report Type: Spontaneous
  Country: US (occurrence: US)
  Receive Date: 20190924
  Receipt Date: 20200831
  Transmission Date: 20201102
  Serious: Yes (Other)
  Sender: FDA-Public Use
  Company Number: US-GILEAD-2019-0429676

PATIENT
  Age: 59 Year
  Sex: Male
  Weight: 74.83 kg

DRUGS (55)
  1. TRUVADA [Suspect]
     Active Substance: EMTRICITABINE\TENOFOVIR DISOPROXIL FUMARATE
     Indication: HIV INFECTION
     Dosage: UNK
     Route: 048
     Dates: start: 20150416, end: 20170620
  2. EPIVIR [Concomitant]
     Active Substance: LAMIVUDINE
  3. KALETRA [Concomitant]
     Active Substance: LOPINAVIR\RITONAVIR
  4. LORAZEPAM. [Concomitant]
     Active Substance: LORAZEPAM
  5. OXCARBAZEPIN [Concomitant]
     Active Substance: OXCARBAZEPINE
  6. OLANZAPINE. [Concomitant]
     Active Substance: OLANZAPINE
  7. QUETIAPINE. [Concomitant]
     Active Substance: QUETIAPINE
  8. SENNA ALATA LEAF [Concomitant]
  9. DESCOVY [Concomitant]
     Active Substance: EMTRICITABINE\TENOFOVIR ALAFENAMIDE FUMARATE
  10. TIZANIDINE. [Concomitant]
     Active Substance: TIZANIDINE
  11. HYDROCODONE BITARTRATE AND ACETAMINOPHEN [Concomitant]
     Active Substance: ACETAMINOPHEN\HYDROCODONE BITARTRATE
  12. SUMATRIPTAN. [Concomitant]
     Active Substance: SUMATRIPTAN
  13. FLUCONAZOLE. [Concomitant]
     Active Substance: FLUCONAZOLE
  14. CREON [Concomitant]
     Active Substance: PANCRELIPASE AMYLASE\PANCRELIPASE LIPASE\PANCRELIPASE PROTEASE
  15. HYOSCYAMINE. [Concomitant]
     Active Substance: HYOSCYAMINE
  16. MIRTAZEPINE TEVA [Concomitant]
     Active Substance: MIRTAZAPINE
  17. NAMENDA [Concomitant]
     Active Substance: MEMANTINE HYDROCHLORIDE
  18. EFFEXOR [Concomitant]
     Active Substance: VENLAFAXINE HYDROCHLORIDE
  19. ANTABUSE [Concomitant]
     Active Substance: DISULFIRAM
  20. CEFDINIR. [Concomitant]
     Active Substance: CEFDINIR
  21. PREZISTA [Concomitant]
     Active Substance: DARUNAVIR ETHANOLATE
  22. TEMAZEPAM. [Concomitant]
     Active Substance: TEMAZEPAM
  23. TRAZODONE [Concomitant]
     Active Substance: TRAZODONE HYDROCHLORIDE
  24. ATRIPLA [Suspect]
     Active Substance: EFAVIRENZ\EMTRICITABINE\TENOFOVIR DISOPROXIL FUMARATE
     Indication: HIV INFECTION
     Dosage: UNK
     Route: 048
     Dates: start: 2001, end: 2017
  25. NORVIR [Concomitant]
     Active Substance: RITONAVIR
  26. TIVICAY [Concomitant]
     Active Substance: DOLUTEGRAVIR SODIUM
  27. ACYCLOVIR [ACICLOVIR] [Concomitant]
     Active Substance: ACYCLOVIR
  28. METOPROLOL. [Concomitant]
     Active Substance: METOPROLOL
  29. DAPSONE. [Concomitant]
     Active Substance: DAPSONE
  30. DIVALPROEX [Concomitant]
     Active Substance: DIVALPROEX SODIUM
  31. DOXYCYCLINE. [Concomitant]
     Active Substance: DOXYCYCLINE
  32. VIREAD [Suspect]
     Active Substance: TENOFOVIR DISOPROXIL FUMARATE
     Indication: HIV INFECTION
     Dosage: UNK
     Route: 048
     Dates: start: 2001, end: 2017
  33. REYATAZ [Concomitant]
     Active Substance: ATAZANAVIR SULFATE
  34. CLONAZEPAM. [Concomitant]
     Active Substance: CLONAZEPAM
  35. ALPRAZOLAM. [Concomitant]
     Active Substance: ALPRAZOLAM
  36. MUCINEX [Concomitant]
     Active Substance: GUAIFENESIN
  37. LAMOTRIGINE. [Concomitant]
     Active Substance: LAMOTRIGINE
  38. OMEPRAZOLE. [Concomitant]
     Active Substance: OMEPRAZOLE
  39. GABAPENTIN. [Concomitant]
     Active Substance: GABAPENTIN
  40. LINZESS [Concomitant]
     Active Substance: LINACLOTIDE
  41. METHOCARBAMOL. [Concomitant]
     Active Substance: METHOCARBAMOL
  42. TAMSULOSIN [Concomitant]
     Active Substance: TAMSULOSIN
  43. COMBIVIR [Concomitant]
     Active Substance: LAMIVUDINE\ZIDOVUDINE
  44. ZYPREXA [Concomitant]
     Active Substance: OLANZAPINE
  45. PROMETHAZINE [Concomitant]
     Active Substance: PROMETHAZINE HYDROCHLORIDE
  46. ABILIFY [Concomitant]
     Active Substance: ARIPIPRAZOLE
  47. LYRICA [Concomitant]
     Active Substance: PREGABALIN
  48. METAXALONE. [Concomitant]
     Active Substance: METAXALONE
  49. PHENAZOPYRIDINE. [Concomitant]
     Active Substance: PHENAZOPYRIDINE
  50. ISENTRESS [Concomitant]
     Active Substance: RALTEGRAVIR POTASSIUM
  51. PYRIDOSTIGMINE [Concomitant]
     Active Substance: PYRIDOSTIGMINE
  52. AZITHROMYCIN ANHYDROUS. [Concomitant]
     Active Substance: AZITHROMYCIN ANHYDROUS
  53. KADIAN [Concomitant]
     Active Substance: MORPHINE SULFATE
  54. NADOLOL. [Concomitant]
     Active Substance: NADOLOL
  55. RANITIDINE. [Concomitant]
     Active Substance: RANITIDINE

REACTIONS (10)
  - Decreased activity [Not Recovered/Not Resolved]
  - Emotional distress [Not Recovered/Not Resolved]
  - Quality of life decreased [Not Recovered/Not Resolved]
  - Fracture [Not Recovered/Not Resolved]
  - Bone disorder [Not Recovered/Not Resolved]
  - Renal failure [Unknown]
  - Osteoporosis [Not Recovered/Not Resolved]
  - Anhedonia [Not Recovered/Not Resolved]
  - Pain [Not Recovered/Not Resolved]
  - Anxiety [Not Recovered/Not Resolved]

NARRATIVE: CASE EVENT DATE: 20170620
